FAERS Safety Report 15272511 (Version 1)
Quarter: 2018Q3

REPORT INFORMATION
  Report Type: Spontaneous
  Country: JP (occurrence: JP)
  Receive Date: 20180813
  Receipt Date: 20180813
  Transmission Date: 20181010
  Serious: Yes (Other)
  Sender: FDA-Public Use
  Company Number: JP-SAOL THERAPEUTICS-2018SAO00919

PATIENT
  Age: 9 Year
  Sex: Female

DRUGS (6)
  1. PREDNISLONE [Concomitant]
  2. HEPATITIS B IMMUNE GLOBULIN [Suspect]
     Active Substance: HUMAN HEPATITIS B VIRUS IMMUNE GLOBULIN
     Dosage: 50?200 IU/KG, AS NEEDED
     Route: 042
  3. MYCOPHENOLATE MOFETIL. [Concomitant]
     Active Substance: MYCOPHENOLATE MOFETIL
  4. HEPATITIS B IMMUNE GLOBULIN [Suspect]
     Active Substance: HUMAN HEPATITIS B VIRUS IMMUNE GLOBULIN
     Indication: PROPHYLAXIS
     Dosage: 200 IU/KG, 1X/DAY
     Route: 042
  5. TACROLIMUS. [Concomitant]
     Active Substance: TACROLIMUS
  6. STEROID LOW DOSE [Concomitant]

REACTIONS (3)
  - Viral mutation identified [Not Recovered/Not Resolved]
  - Drug ineffective [Not Recovered/Not Resolved]
  - Hepatitis B [Recovered/Resolved]
